FAERS Safety Report 7059039-2 (Version None)
Quarter: 2010Q4

REPORT INFORMATION
  Report Type: 
  Country: None (occurrence: None)
  Receive Date: 20101025
  Receipt Date: 20101014
  Transmission Date: 20110411
  Serious: Yes (Hospitalization)
  Sender: FDA-Public Use
  Company Number: US-BIOGENIDEC-2010BI036493

PATIENT
  Age: 49 Year
  Sex: Female

DRUGS (1)
  1. AVONEX [Suspect]
     Indication: MULTIPLE SCLEROSIS
     Route: 030
     Dates: start: 20050518

REACTIONS (6)
  - ASTHMA [None]
  - DEPRESSION [None]
  - DIABETES MELLITUS [None]
  - MENTAL DISORDER [None]
  - POISONING [None]
  - WEIGHT DECREASED [None]
